FAERS Safety Report 6908757-2 (Version None)
Quarter: 2010Q3

REPORT INFORMATION
  Report Type: 
  Country: None (occurrence: None)
  Receive Date: 20100805
  Receipt Date: 20100726
  Transmission Date: 20110219
  Serious: Yes (Hospitalization)
  Sender: FDA-Public Use
  Company Number: A0859758A

PATIENT
  Age: 84 Year
  Sex: Female

DRUGS (10)
  1. PAXIL CR [Suspect]
     Indication: PANIC DISORDER
     Dosage: 12.5MG PER DAY
     Route: 048
     Dates: start: 19800101
  2. RYTHMOL [Suspect]
     Indication: PRODUCT USED FOR UNKNOWN INDICATION
     Dosage: 150MG THREE TIMES PER DAY
     Route: 048
  3. NORVASC [Concomitant]
     Dosage: 5MG TWICE PER DAY
     Route: 048
  4. COZAAR [Concomitant]
     Dosage: 50MG AT NIGHT
  5. ASPIRIN [Concomitant]
  6. PRILOSEC [Concomitant]
     Dosage: 20MG PER DAY
     Route: 048
  7. PROPAFENONE [Concomitant]
  8. CRESTOR [Concomitant]
  9. SIMVASTATIN [Concomitant]
     Dosage: 40MG PER DAY
  10. KEFLEX [Concomitant]
     Dosage: 5MG THREE TIMES PER DAY
     Route: 048

REACTIONS (17)
  - ARRHYTHMIA [None]
  - ATRIAL FIBRILLATION [None]
  - CARDIAC VALVE DISEASE [None]
  - COLITIS [None]
  - CONSTIPATION [None]
  - DIZZINESS [None]
  - ENTEROCOLITIS BACTERIAL [None]
  - ESCHERICHIA URINARY TRACT INFECTION [None]
  - GASTROENTERITIS BACTERIAL [None]
  - HAEMATOCHEZIA [None]
  - HEART RATE IRREGULAR [None]
  - HIATUS HERNIA [None]
  - HYPERTENSION [None]
  - HYPOKALAEMIA [None]
  - RECTAL HAEMORRHAGE [None]
  - RENAL FAILURE [None]
  - SUPRAVENTRICULAR TACHYCARDIA [None]
